FAERS Safety Report 10184837 (Version 2)
Quarter: 2014Q2

REPORT INFORMATION
  Report Type: Spontaneous
  Country: US (occurrence: US)
  Receive Date: 20140521
  Receipt Date: 20140603
  Transmission Date: 20141212
  Serious: No
  Sender: FDA-Public Use
  Company Number: US-009507513-1405USA008395

PATIENT
  Sex: Female
  Weight: 63.49 kg

DRUGS (2)
  1. OXYTROL FOR WOMEN [Suspect]
     Indication: MICTURITION URGENCY
     Dosage: UNK, UNKNOWN
     Route: 062
     Dates: start: 201402, end: 20140401
  2. SYNTHROID [Concomitant]
     Indication: THYROID DISORDER
     Dosage: UNK, UNKNOWN

REACTIONS (4)
  - Application site papules [Unknown]
  - Application site rash [Recovered/Resolved]
  - Application site pruritus [Unknown]
  - Application site erythema [Unknown]
